FAERS Safety Report 7820215-X (Version None)
Quarter: 2011Q4

REPORT INFORMATION
  Report Type: 
  Country: None (occurrence: None)
  Receive Date: 20111018
  Receipt Date: 20111004
  Transmission Date: 20120403
  Serious: Yes (Death, Other)
  Sender: FDA-Public Use
  Company Number: CH-ELI_LILLY_AND_COMPANY-CH201110000939

PATIENT
  Age: 17 Year
  Sex: Female

DRUGS (1)
  1. FLUOXETINE HYDROCHLORIDE [Suspect]
     Indication: LETHARGY

REACTIONS (2)
  - COMPLETED SUICIDE [None]
  - OFF LABEL USE [None]
